FAERS Safety Report 17600417 (Version 1)
Quarter: 2020Q1

REPORT INFORMATION
  Report Type: Spontaneous
  Country: NO (occurrence: NO)
  Receive Date: 20200330
  Receipt Date: 20200330
  Transmission Date: 20200409
  Serious: Yes (Other)
  Sender: FDA-Public Use
  Company Number: NO-PFIZER INC-2020109836

PATIENT
  Sex: Male

DRUGS (4)
  1. VALIUM [Suspect]
     Active Substance: DIAZEPAM
     Dosage: UNK
  2. KETORAX [Suspect]
     Active Substance: KETOBEMIDONE HYDROCHLORIDE
     Dosage: UNK
  3. XANOR [Suspect]
     Active Substance: ALPRAZOLAM
     Dosage: UNK
     Dates: start: 2019, end: 2019
  4. XANOR [Suspect]
     Active Substance: ALPRAZOLAM
     Indication: BACK PAIN
     Dosage: 18 MG, DAILY (6 X 3 MG)

REACTIONS (7)
  - Pain [Unknown]
  - Product prescribing error [Unknown]
  - Loss of consciousness [Unknown]
  - Coma [Unknown]
  - Amnesia [Unknown]
  - Muscle spasms [Unknown]
  - Tremor [Unknown]

NARRATIVE: CASE EVENT DATE: 2019
